FAERS Safety Report 9138031 (Version 1)
Quarter: 2013Q1

REPORT INFORMATION
  Report Type: Spontaneous
  Country: US (occurrence: US)
  Receive Date: 20130304
  Receipt Date: 20130304
  Transmission Date: 20140127
  Serious: Yes (Other)
  Sender: FDA-Public Use
  Company Number: US-PFIZER INC-2013074255

PATIENT
  Age: 37 Year
  Sex: Female

DRUGS (2)
  1. EFFEXOR XR [Suspect]
     Dosage: 37.5 MG, UNK
  2. NEURONTIN [Suspect]
     Dosage: 600 MG, UNK

REACTIONS (4)
  - Bipolar disorder [Unknown]
  - Panic attack [Unknown]
  - Fibromyalgia [Unknown]
  - Irritable bowel syndrome [Unknown]
